FAERS Safety Report 21003365 (Version 4)
Quarter: 2023Q1

REPORT INFORMATION
  Report Type: Spontaneous
  Country: US (occurrence: US)
  Receive Date: 20220624
  Receipt Date: 20230202
  Transmission Date: 20230418
  Serious: No
  Sender: FDA-Public Use
  Company Number: US-GLAXOSMITHKLINE-US2022AMR096259

PATIENT
  Sex: Female

DRUGS (3)
  1. ZEJULA [Suspect]
     Active Substance: NIRAPARIB
     Indication: Ovarian cancer
     Dosage: UNK, Z (100MG ALTERNATING WITH 200MG EVERY OTHER DAY)
     Dates: start: 20191115
  2. ZEJULA [Suspect]
     Active Substance: NIRAPARIB
     Dosage: 100 MG (USE AS DIRECTED)
     Route: 048
  3. ZEJULA [Suspect]
     Active Substance: NIRAPARIB
     Dosage: UNK, (100MG ALTERNATING WITH 200MG EVERY OTHER DAY)

REACTIONS (7)
  - Fatigue [Unknown]
  - Blood pressure increased [Not Recovered/Not Resolved]
  - Alopecia [Unknown]
  - Blood cholesterol abnormal [Unknown]
  - Thyroid mass [Unknown]
  - Off label use [Unknown]
  - Drug monitoring procedure not performed [Unknown]
